FAERS Safety Report 9329994 (Version 1)
Quarter: 2013Q2

REPORT INFORMATION
  Report Type: Spontaneous
  Country: US (occurrence: US)
  Receive Date: 20130604
  Receipt Date: 20130604
  Transmission Date: 20140414
  Serious: No
  Sender: FDA-Public Use
  Company Number: US-SANOFI-AVENTIS-2012SA055718

PATIENT
  Sex: Female

DRUGS (6)
  1. LANTUS [Suspect]
     Route: 058
     Dates: end: 201206
  2. LANTUS [Suspect]
     Dosage: DOSE INCREASED
     Route: 058
     Dates: start: 201206
  3. LANTUS SOLOSTAR [Suspect]
     Dosage: DOSE INCREASED
     Route: 058
     Dates: start: 201206
  4. LANTUS SOLOSTAR [Suspect]
     Route: 058
     Dates: end: 201206
  5. SOLOSTAR [Suspect]
  6. NOVOLOG [Concomitant]

REACTIONS (4)
  - Increased appetite [Unknown]
  - Weight increased [Unknown]
  - Local swelling [Not Recovered/Not Resolved]
  - Blood glucose increased [Unknown]
